FAERS Safety Report 15866241 (Version 3)
Quarter: 2019Q3

REPORT INFORMATION
  Report Type: Spontaneous
  Country: US (occurrence: US)
  Receive Date: 20190125
  Receipt Date: 20190918
  Transmission Date: 20191004
  Serious: No
  Sender: FDA-Public Use
  Company Number: US-PFIZER INC-2019031767

PATIENT
  Age: 63 Year

DRUGS (2)
  1. LYRICA [Suspect]
     Active Substance: PREGABALIN
     Dosage: 400 MG, DAILY
  2. LYRICA [Suspect]
     Active Substance: PREGABALIN
     Dosage: 200 MG, UNK

REACTIONS (6)
  - Intentional product use issue [Unknown]
  - Mental disorder [Unknown]
  - Neuralgia [Unknown]
  - Withdrawal syndrome [Unknown]
  - Pain [Unknown]
  - Blood pressure increased [Unknown]
